FAERS Safety Report 25476195 (Version 1)
Quarter: 2025Q2

REPORT INFORMATION
  Report Type: Spontaneous
  Country: US (occurrence: US)
  Receive Date: 20250625
  Receipt Date: 20250625
  Transmission Date: 20250717
  Serious: No
  Sender: Harrow Health
  Company Number: US-HARROW-HAR-2025-US-00102

PATIENT
  Age: 66 Year
  Sex: Female

DRUGS (7)
  1. VEVYE [Suspect]
     Active Substance: CYCLOSPORINE
     Route: 047
     Dates: start: 20250403, end: 20250406
  2. SYNTHROID [Concomitant]
     Active Substance: LEVOTHYROXINE SODIUM
  3. LIOTHYRONINE [Concomitant]
     Active Substance: LIOTHYRONINE
  4. EZETIMIBE [Concomitant]
     Active Substance: EZETIMIBE
  5. FISH OIL [Concomitant]
     Active Substance: FISH OIL
  6. VITAMIN D3 [Concomitant]
     Active Substance: CHOLECALCIFEROL
  7. CALCIUM [Concomitant]
     Active Substance: CALCIUM

REACTIONS (3)
  - Eye irritation [Unknown]
  - Ocular hyperaemia [Unknown]
  - Eye pain [Unknown]

NARRATIVE: CASE EVENT DATE: 20250406
